FAERS Safety Report 23527834 (Version 1)
Quarter: 2024Q1

REPORT INFORMATION
  Report Type: Spontaneous
  Country: RU (occurrence: RU)
  Receive Date: 20240215
  Receipt Date: 20240215
  Transmission Date: 20240410
  Serious: Yes (Life-Threatening, Hospitalization, Other)
  Sender: FDA-Public Use
  Company Number: RU-PFIZER INC-202400041652

PATIENT
  Age: 67 Year
  Sex: Female

DRUGS (2)
  1. METHYLPREDNISOLONE SODIUM SUCCINATE [Suspect]
     Active Substance: METHYLPREDNISOLONE SODIUM SUCCINATE
     Indication: Nystagmus
     Dosage: 3 G
     Route: 042
  2. LEVOTHYROXINE [Concomitant]
     Active Substance: LEVOTHYROXINE\LEVOTHYROXINE SODIUM
     Indication: Autoimmune thyroiditis
     Dosage: 50 UG, DAILY

REACTIONS (3)
  - Drug ineffective for unapproved indication [Unknown]
  - Off label use [Unknown]
  - Drug intolerance [Unknown]
